FAERS Safety Report 7983612-8 (Version None)
Quarter: 2011Q4

REPORT INFORMATION
  Report Type: 
  Country: None (occurrence: None)
  Receive Date: 20111215
  Receipt Date: 20111213
  Transmission Date: 20120403
  Serious: Yes (Death, Other)
  Sender: FDA-Public Use
  Company Number: PHHY2011AU104602

PATIENT
  Sex: Female

DRUGS (13)
  1. IMDUR [Concomitant]
     Dosage: 60 MG, HALF A TABLET IN THE MORNING
     Route: 048
  2. ACETAMINOPHEN [Concomitant]
     Dosage: 665 MG, DAILY TWO THREE TIMES A DAY WHEN REQUIRED
     Route: 048
  3. HYDROMORPHONE HCL [Concomitant]
     Dosage: UNK UKN, UNK
     Route: 030
  4. QUESTRAN [Concomitant]
     Dosage: SACHET 4.7G ORAL 1 SACHET ONCE DAILY INCREASING TO TWICE DAILY IF NECESSARY
     Route: 048
  5. MAXOLON [Concomitant]
     Dosage: 10 MG/ 2ML, UNK
     Route: 030
  6. GABAPENTIN [Concomitant]
     Dosage: 300 MG, DAILY
     Route: 048
  7. CADUET [Concomitant]
     Dosage: 5MG/40MG DAILY
     Route: 048
  8. OXYCONTIN [Concomitant]
     Dosage: UNK UKN, BID
     Route: 048
  9. ZOLEDRONOC ACID [Suspect]
     Indication: OSTEOPOROSIS
     Dosage: 5 MG, UNK
     Route: 042
     Dates: start: 20100414
  10. BETNOVATE [Concomitant]
     Dosage: 1/5 CREAM 0.02% TOPICAL
     Route: 061
  11. DEXAMETHASONE [Concomitant]
     Dosage: UNK UKN, UNK
     Route: 048
  12. MICARDIS [Concomitant]
     Dosage: 80 MG, HALF A TABLET DAILY
     Route: 048
  13. RABEPRAZOLE SODIUM [Concomitant]
     Dosage: UNK UKN, UNK
     Route: 048

REACTIONS (3)
  - LUNG CANCER METASTATIC [None]
  - LOSS OF CONSCIOUSNESS [None]
  - CIRCULATORY COLLAPSE [None]
